FAERS Safety Report 13563623 (Version 1)
Quarter: 2017Q2

REPORT INFORMATION
  Report Type: Spontaneous
  Country: US (occurrence: US)
  Receive Date: 20170519
  Receipt Date: 20170519
  Transmission Date: 20170830
  Serious: Yes (Other)
  Sender: FDA-Public Use
  Company Number: US-ELI_LILLY_AND_COMPANY-US201705005065

PATIENT
  Age: 67 Year
  Sex: Male

DRUGS (1)
  1. TRULICITY [Suspect]
     Active Substance: DULAGLUTIDE
     Indication: PRODUCT USED FOR UNKNOWN INDICATION
     Dosage: 1.5 MG, UNKNOWN
     Route: 065
     Dates: start: 201410, end: 20170423

REACTIONS (6)
  - Diarrhoea [Recovered/Resolved]
  - Pancreatitis [Unknown]
  - Blood glucose increased [Not Recovered/Not Resolved]
  - Abdominal pain upper [Recovered/Resolved]
  - Colitis [Unknown]
  - Food poisoning [Recovered/Resolved]

NARRATIVE: CASE EVENT DATE: 20170427
